FAERS Safety Report 25306193 (Version 1)
Quarter: 2025Q2

REPORT INFORMATION
  Report Type: Spontaneous
  Country: RO (occurrence: RO)
  Receive Date: 20250513
  Receipt Date: 20250513
  Transmission Date: 20250716
  Serious: Yes (Death, Hospitalization, Disabling)
  Sender: MACLEODS
  Company Number: RO-MACLEODS PHARMA-MAC2025052998

PATIENT

DRUGS (3)
  1. ATORVASTATIN [Suspect]
     Active Substance: ATORVASTATIN
     Indication: Product used for unknown indication
     Route: 065
  2. ASPIRIN [Concomitant]
     Active Substance: ASPIRIN
     Indication: Product used for unknown indication
     Route: 065
  3. PROPRANOLOL [Concomitant]
     Active Substance: PROPRANOLOL HYDROCHLORIDE
     Indication: Product used for unknown indication
     Route: 065

REACTIONS (11)
  - Hepatic cirrhosis [Fatal]
  - Quadriparesis [Recovered/Resolved]
  - Cardiomyopathy acute [Recovered/Resolved]
  - Thrombocytopenia [Recovered/Resolved]
  - Leukocytosis [Recovered/Resolved]
  - Hepatic cytolysis [Recovered/Resolved]
  - Hyperammonaemia [Recovered/Resolved]
  - Hypocholesterolaemia [Recovered/Resolved]
  - Mitral valve incompetence [Recovered/Resolved]
  - Cell death [Recovered/Resolved]
  - Rhabdomyolysis [Recovered/Resolved]
